FAERS Safety Report 18883506 (Version 1)
Quarter: 2021Q1

REPORT INFORMATION
  Report Type: Spontaneous
  Country: US (occurrence: US)
  Receive Date: 20210211
  Receipt Date: 20210211
  Transmission Date: 20210420
  Serious: No
  Sender: FDA-Public Use
  Company Number: US-PERRIGO-20US016237

PATIENT
  Age: 89 Year
  Sex: Female

DRUGS (5)
  1. DOXEPIN [Concomitant]
     Active Substance: DOXEPIN
     Indication: URTICARIA
     Dosage: UNK
     Route: 065
  2. MULTIVITAMINS, PLAIN [Concomitant]
     Active Substance: VITAMINS
     Indication: PRODUCT USED FOR UNKNOWN INDICATION
     Dosage: UNK
     Route: 065
  3. CETIRIZINE HYDROCHLORIDE. [Suspect]
     Active Substance: CETIRIZINE HYDROCHLORIDE
     Dosage: 10 MG, BID
     Route: 048
     Dates: start: 202007
  4. MAGNESIUM [Concomitant]
     Active Substance: MAGNESIUM
     Indication: PRODUCT USED FOR UNKNOWN INDICATION
     Dosage: UNK
     Route: 065
  5. CETIRIZINE HYDROCHLORIDE. [Suspect]
     Active Substance: CETIRIZINE HYDROCHLORIDE
     Indication: CHRONIC SPONTANEOUS URTICARIA
     Dosage: 10 MG, QD
     Route: 048
     Dates: start: 202007, end: 202007

REACTIONS (2)
  - Drug ineffective for unapproved indication [Unknown]
  - Product administered to patient of inappropriate age [Not Recovered/Not Resolved]

NARRATIVE: CASE EVENT DATE: 202007
